FAERS Safety Report 20948905 (Version 3)
Quarter: 2024Q1

REPORT INFORMATION
  Report Type: Spontaneous
  Country: US (occurrence: US)
  Receive Date: 20220612
  Receipt Date: 20240221
  Transmission Date: 20240410
  Serious: Yes (Disabling, Other)
  Sender: FDA-Public Use
  Company Number: US-JNJFOC-20220609958

PATIENT
  Age: 59 Year
  Sex: Female

DRUGS (2)
  1. ELMIRON [Suspect]
     Active Substance: PENTOSAN POLYSULFATE SODIUM
     Indication: Cystitis interstitial
     Dosage: IN VARYING FREQUENCIES OF TWICE DAILY AND 01 EVERYDAY
     Route: 048
     Dates: start: 20130101, end: 20200601
  2. ELMIRON [Suspect]
     Active Substance: PENTOSAN POLYSULFATE SODIUM
     Route: 048

REACTIONS (4)
  - Dry age-related macular degeneration [Not Recovered/Not Resolved]
  - Blindness [Not Recovered/Not Resolved]
  - Pigmentary maculopathy [Unknown]
  - Off label use [Unknown]

NARRATIVE: CASE EVENT DATE: 20130101
